FAERS Safety Report 26144627 (Version 1)
Quarter: 2025Q4

REPORT INFORMATION
  Report Type: Spontaneous
  Country: EU (occurrence: EU)
  Receive Date: 20251211
  Receipt Date: 20251211
  Transmission Date: 20260117
  Serious: Yes (Hospitalization)
  Sender: CHEPLAPHARM
  Company Number: None

PATIENT
  Age: 40 Year
  Sex: Female
  Weight: 50 kg

DRUGS (7)
  1. QUETIAPINE [Suspect]
     Active Substance: QUETIAPINE
     Dosage: DAILY DOSE: 100 MILLIGRAM
     Route: 048
     Dates: start: 20251002, end: 20251002
  2. MIDAZOLAM [Suspect]
     Active Substance: MIDAZOLAM
     Indication: Agitation
  3. METHADONE HYDROCHLORIDE [Suspect]
     Active Substance: METHADONE HYDROCHLORIDE
     Dosage: 50 MG/DAY IN REDUCTION PHASE?DAILY DOSE: 50 MILLIGRAM
     Route: 048
     Dates: start: 20170101
  4. METHADONE HYDROCHLORIDE [Suspect]
     Active Substance: METHADONE HYDROCHLORIDE
     Dosage: DAILY DOSE: 80 MILLIGRAM
     Route: 048
     Dates: start: 20251002, end: 20251002
  5. RISPERIDONE [Concomitant]
     Active Substance: RISPERIDONE
  6. DIAZEPAM [Concomitant]
     Active Substance: DIAZEPAM
  7. CARBIMAZOLE [Concomitant]
     Active Substance: CARBIMAZOLE
     Indication: Treatment noncompliance

REACTIONS (3)
  - Toxicity to various agents [Recovered/Resolved]
  - Aggression [Recovered/Resolved]
  - Agitation [Recovered/Resolved]

NARRATIVE: CASE EVENT DATE: 20251002
